FAERS Safety Report 7807782-7 (Version None)
Quarter: 2011Q4

REPORT INFORMATION
  Report Type: 
  Country: None (occurrence: None)
  Receive Date: 20111011
  Receipt Date: 20110914
  Transmission Date: 20120403
  Serious: Yes (Life-Threatening, Hospitalization)
  Sender: FDA-Public Use
  Company Number: JP-GLAXOSMITHKLINE-B0693336A

PATIENT

DRUGS (13)
  1. AMBRISENTAN [Suspect]
     Indication: PULMONARY HYPERTENSION
     Dosage: UNK UNK, QD
     Route: 048
     Dates: start: 20101019, end: 20101224
  2. FLOLAN [Concomitant]
     Indication: PULMONARY HYPERTENSION
  3. MUCOSTA [Concomitant]
     Indication: PROPHYLAXIS
     Route: 048
  4. FUROSEMIDE [Concomitant]
     Route: 048
  5. URSO 250 [Concomitant]
     Route: 048
  6. LANSOPRAZOLE [Concomitant]
     Route: 048
  7. PREDNISOLONE [Concomitant]
     Indication: SCLERODERMA
     Route: 048
  8. ALDACTONE [Concomitant]
     Indication: PROPHYLAXIS
     Route: 048
  9. LOXONIN [Concomitant]
     Route: 048
  10. REVATIO [Concomitant]
     Indication: PULMONARY HYPERTENSION
  11. GLAKAY [Concomitant]
     Indication: PROPHYLAXIS
     Route: 048
  12. ASPARTIC ACID [Concomitant]
     Indication: PROPHYLAXIS
  13. MAGMITT [Concomitant]
     Route: 048

REACTIONS (2)
  - CARDIAC FAILURE [None]
  - PULMONARY ALVEOLAR HAEMORRHAGE [None]
